FAERS Safety Report 5196360-7 (Version None)
Quarter: 2006Q4

REPORT INFORMATION
  Report Type: 
  Country: None (occurrence: None)
  Receive Date: 20061222
  Receipt Date: 20061215
  Transmission Date: 20070319
  Serious: Yes (Life-Threatening, Hospitalization, Other)
  Sender: FDA-Public Use
  Company Number: 2006SP006690

PATIENT
  Age: 56 Year
  Sex: Female
  Weight: 50 kg

DRUGS (14)
  1. TEMODAL [Suspect]
     Indication: GLIOBLASTOMA MULTIFORME
     Dosage: 75 MG/M2; QD; PO
     Route: 048
     Dates: start: 20061023, end: 20061112
  2. ZONEGRAN [Suspect]
     Indication: EPILEPSY
     Dosage: 200 MG PO
     Route: 048
     Dates: start: 20061017, end: 20061110
  3. FAMOTIDINE [Suspect]
     Indication: GASTRIC ULCER
     Dosage: 20 MG BID PO
     Route: 048
     Dates: start: 20061017, end: 20061107
  4. FAMOTIDINE [Suspect]
     Indication: GASTRITIS
     Dosage: 20 MG BID PO
     Route: 048
     Dates: start: 20061017, end: 20061107
  5. ISOBIDE [Concomitant]
  6. DECADRON [Concomitant]
  7. ZOFRAN [Concomitant]
  8. TOUGHMAC E [Concomitant]
  9. RADIATION THERAPY [Concomitant]
  10. BACTRIM [Concomitant]
  11. GLYCEOL [Concomitant]
  12. NEOLAMIN [Concomitant]
  13. ASCORBIC ACID [Concomitant]
  14. SENNOSIDE [Concomitant]

REACTIONS (3)
  - PLATELET COUNT DECREASED [None]
  - STEVENS-JOHNSON SYNDROME [None]
  - WHITE BLOOD CELL COUNT DECREASED [None]
